FAERS Safety Report 25661062 (Version 1)
Quarter: 2025Q3

REPORT INFORMATION
  Report Type: Spontaneous
  Country: TR (occurrence: TR)
  Receive Date: 20250808
  Receipt Date: 20250808
  Transmission Date: 20251020
  Serious: Yes (Death, Other)
  Sender: AMGEN
  Company Number: TR-AMGEN-TURSP2025151884

PATIENT

DRUGS (22)
  1. ADALIMUMAB [Suspect]
     Active Substance: ADALIMUMAB
     Indication: Ankylosing spondylitis
     Route: 065
  2. ADALIMUMAB [Suspect]
     Active Substance: ADALIMUMAB
     Indication: Psoriasis
  3. ADALIMUMAB [Suspect]
     Active Substance: ADALIMUMAB
     Indication: Psoriatic arthropathy
  4. ADALIMUMAB [Suspect]
     Active Substance: ADALIMUMAB
     Indication: Uveitis
  5. ADALIMUMAB [Suspect]
     Active Substance: ADALIMUMAB
     Indication: Rheumatoid arthritis
  6. ADALIMUMAB [Suspect]
     Active Substance: ADALIMUMAB
     Indication: Crohn^s disease
  7. ADALIMUMAB [Suspect]
     Active Substance: ADALIMUMAB
     Indication: Colitis ulcerative
  8. ADALIMUMAB [Suspect]
     Active Substance: ADALIMUMAB
     Indication: Fibromyalgia
  9. ADALIMUMAB [Suspect]
     Active Substance: ADALIMUMAB
     Indication: Behcet^s syndrome
  10. ADALIMUMAB [Suspect]
     Active Substance: ADALIMUMAB
     Indication: Systemic lupus erythematosus
  11. ADALIMUMAB [Suspect]
     Active Substance: ADALIMUMAB
     Indication: Neoplasm malignant
  12. ETANERCEPT [Suspect]
     Active Substance: ETANERCEPT
     Indication: Ankylosing spondylitis
     Route: 065
  13. ETANERCEPT [Suspect]
     Active Substance: ETANERCEPT
     Indication: Psoriasis
  14. ETANERCEPT [Suspect]
     Active Substance: ETANERCEPT
     Indication: Psoriatic arthropathy
  15. ETANERCEPT [Suspect]
     Active Substance: ETANERCEPT
     Indication: Uveitis
  16. ETANERCEPT [Suspect]
     Active Substance: ETANERCEPT
     Indication: Rheumatoid arthritis
  17. ETANERCEPT [Suspect]
     Active Substance: ETANERCEPT
     Indication: Crohn^s disease
  18. ETANERCEPT [Suspect]
     Active Substance: ETANERCEPT
     Indication: Colitis ulcerative
  19. ETANERCEPT [Suspect]
     Active Substance: ETANERCEPT
     Indication: Fibromyalgia
  20. ETANERCEPT [Suspect]
     Active Substance: ETANERCEPT
     Indication: Behcet^s syndrome
  21. ETANERCEPT [Suspect]
     Active Substance: ETANERCEPT
     Indication: Systemic lupus erythematosus
  22. ETANERCEPT [Suspect]
     Active Substance: ETANERCEPT
     Indication: Neoplasm malignant

REACTIONS (3)
  - Death [Fatal]
  - Hepatotoxicity [Unknown]
  - Adverse drug reaction [Unknown]
